FAERS Safety Report 5984826-9 (Version None)
Quarter: 2008Q4

REPORT INFORMATION
  Report Type: 
  Country: None (occurrence: None)
  Receive Date: 20081202
  Receipt Date: 20081120
  Transmission Date: 20090506
  Serious: Yes (Other)
  Sender: FDA-Public Use
  Company Number: DSU-2008-00352

PATIENT
  Age: 61 Year
  Sex: Female
  Weight: 64 kg

DRUGS (2)
  1. CHOLESTAGEL (COLESEVELAM HYDROCHLORIDE) (625 MILLIGRAM, TABLET) (COLES [Suspect]
     Indication: HYPERCHOLESTEROLAEMIA
     Dosage: 625 MG (625 MG, QD), PER ORAL, 625 MG (625 MG, QD) PER ORAL
     Route: 048
     Dates: start: 20080201, end: 20080201
  2. CHOLESTAGEL (COLESEVELAM HYDROCHLORIDE) (625 MILLIGRAM, TABLET) (COLES [Suspect]
     Indication: HYPERCHOLESTEROLAEMIA
     Dosage: 625 MG (625 MG, QD), PER ORAL, 625 MG (625 MG, QD) PER ORAL
     Route: 048
     Dates: start: 20080204, end: 20080206

REACTIONS (4)
  - ABDOMINAL PAIN UPPER [None]
  - ANGINA PECTORIS [None]
  - BLOOD CREATINE PHOSPHOKINASE INCREASED [None]
  - MYALGIA [None]
